FAERS Safety Report 7199203-5 (Version None)
Quarter: 2010Q4

REPORT INFORMATION
  Report Type: 
  Country: None (occurrence: None)
  Receive Date: 20101228
  Receipt Date: 20101214
  Transmission Date: 20110411
  Serious: Yes (Hospitalization)
  Sender: FDA-Public Use
  Company Number: PHHY2010CA82619

PATIENT
  Sex: Male

DRUGS (7)
  1. CLOZARIL [Suspect]
     Dosage: 50 MG ONCE
     Route: 048
     Dates: start: 20101130, end: 20101130
  2. CLOZARIL [Suspect]
     Dosage: 12.5 MG
  3. LAMOTRIGINE [Concomitant]
  4. WELLBUTRIN [Concomitant]
  5. VALPROIC ACID [Concomitant]
  6. QUETIAPINE [Concomitant]
  7. ELTROXIN [Concomitant]

REACTIONS (6)
  - EPISTAXIS [None]
  - FACE INJURY [None]
  - FALL [None]
  - HYPOTENSION [None]
  - LOSS OF CONSCIOUSNESS [None]
  - SYNCOPE [None]
